FAERS Safety Report 9398679 (Version 1)
Quarter: 2013Q3

REPORT INFORMATION
  Report Type: Report from Study
  Country: PL (occurrence: PL)
  Receive Date: 20130712
  Receipt Date: 20130712
  Transmission Date: 20140515
  Serious: Yes (Hospitalization)
  Sender: FDA-Public Use
  Company Number: PL-BRISTOL-MYERS SQUIBB COMPANY-16703266

PATIENT
  Age: 74 Year
  Sex: Female

DRUGS (4)
  1. SAXAGLIPTIN [Suspect]
     Indication: TYPE 2 DIABETES MELLITUS
     Dates: start: 20110118, end: 20110614
  2. NOVORAPID [Suspect]
     Indication: TYPE 2 DIABETES MELLITUS
     Dosage: 18IU:INK-30MAR11,?16IU/UNITS:31MAR11-ONG.
  3. LANTUS [Suspect]
     Indication: TYPE 2 DIABETES MELLITUS
     Dosage: 8IU:UNK-30MAR11,?6IU/UNITS:31MAR11-ONG.
  4. ACETYLSALICYLIC ACID [Suspect]
     Dosage: 1DF= }100MG

REACTIONS (1)
  - Gastritis [Recovered/Resolved]
